FAERS Safety Report 5530176-4 (Version None)
Quarter: 2007Q4

REPORT INFORMATION
  Report Type: 
  Country: None (occurrence: None)
  Receive Date: 20071130
  Receipt Date: 20071119
  Transmission Date: 20080405
  Serious: Yes (Life-Threatening, Hospitalization)
  Sender: FDA-Public Use
  Company Number: IS-BAXTER-2007BH008564

PATIENT
  Age: 25 Year
  Sex: Male

DRUGS (2)
  1. EXTRANEAL [Suspect]
     Indication: PERITONEAL DIALYSIS
     Route: 033
     Dates: start: 20041119, end: 20070914
  2. PHYSIONEAL [Concomitant]
     Indication: PERITONEAL DIALYSIS
     Route: 033
     Dates: start: 20041119, end: 20070914

REACTIONS (4)
  - CATHETER RELATED COMPLICATION [None]
  - MALNUTRITION [None]
  - PERITONITIS BACTERIAL [None]
  - SCLEROSING ENCAPSULATING PERITONITIS [None]
